FAERS Safety Report 9690103 (Version 1)
Quarter: 2013Q4

REPORT INFORMATION
  Report Type: Spontaneous
  Country: US (occurrence: US)
  Receive Date: 20131115
  Receipt Date: 20131115
  Transmission Date: 20140711
  Serious: Yes (Other)
  Sender: FDA-Public Use
  Company Number: US-PFIZER INC-2013323321

PATIENT
  Age: 52 Year
  Sex: Female

DRUGS (2)
  1. PREMPRO [Suspect]
     Indication: MENOPAUSAL SYMPTOMS
     Dosage: 0.3/1.5 MG, 1X/DAY
     Route: 048
     Dates: start: 201305, end: 201306
  2. PREMPRO [Suspect]
     Dosage: 0.625/2.5 MG, 1X/DAY
     Route: 048
     Dates: start: 201306

REACTIONS (4)
  - Vaginal haemorrhage [Not Recovered/Not Resolved]
  - Urticaria [Recovered/Resolved]
  - Alopecia [Not Recovered/Not Resolved]
  - Drug ineffective [Unknown]
